FAERS Safety Report 9226625 (Version 1)
Quarter: 2013Q2

REPORT INFORMATION
  Report Type: Spontaneous
  Country: US (occurrence: US)
  Receive Date: 20130412
  Receipt Date: 20130412
  Transmission Date: 20140414
  Serious: No
  Sender: FDA-Public Use
  Company Number: US-009507513-1304USA001239

PATIENT
  Age: 56 Year
  Sex: Female
  Weight: 147 kg

DRUGS (3)
  1. PEGINTRON [Suspect]
     Dosage: REDIPEN; INJECT 96 MICROGRAM, QW
     Route: 058
  2. RIBAVIRIN [Suspect]
     Dosage: 200 MG, UNK
     Route: 048
  3. TELAPREVIR [Suspect]
     Dosage: 375 MG, UNK
     Route: 048

REACTIONS (4)
  - Dizziness [Recovered/Resolved]
  - Haemorrhoids [Unknown]
  - Diarrhoea [Unknown]
  - Tinnitus [Unknown]
